FAERS Safety Report 4457413-1 (Version None)
Quarter: 2004Q3

REPORT INFORMATION
  Report Type: 
  Country: None (occurrence: None)
  Receive Date: 20040902
  Receipt Date: 20040708
  Transmission Date: 20050211
  Serious: Yes (Other)
  Sender: FDA-Public Use
  Company Number: 002#2#2004-00149 (0)

PATIENT
  Age: 45 Year
  Sex: Female
  Weight: 102.0593 kg

DRUGS (4)
  1. TRILYTE-WITH-FLAVOR-PACKS (POLYETHYLENE GLYCOL 3350) [Suspect]
     Indication: COLONOSCOPY
     Dosage: 8OU, 1 OUNCE, ORAL
     Route: 048
     Dates: start: 20040706, end: 20040706
  2. HORMONE-REPLACEMENT-THERAPY [Concomitant]
  3. ESOMEPRAZOLE [Concomitant]
  4. CELECOXIB [Concomitant]

REACTIONS (1)
  - ANAPHYLACTOID REACTION [None]
